FAERS Safety Report 24971345 (Version 2)
Quarter: 2025Q1

REPORT INFORMATION
  Report Type: Spontaneous
  Country: TW (occurrence: TW)
  Receive Date: 20250214
  Receipt Date: 20250324
  Transmission Date: 20250409
  Serious: Yes (Other)
  Sender: MERCK SHARP & DOHME LLC
  Company Number: TW-009507513-2254829

PATIENT
  Age: 67 Year
  Sex: Female

DRUGS (3)
  1. PEMBROLIZUMAB [Suspect]
     Active Substance: PEMBROLIZUMAB
     Indication: Adenocarcinoma
  2. PEMETREXED [Suspect]
     Active Substance: PEMETREXED
  3. CARBOPLATIN [Suspect]
     Active Substance: CARBOPLATIN

REACTIONS (4)
  - Neutropenia [Unknown]
  - Nausea [Unknown]
  - Fatigue [Unknown]
  - Anaemia [Unknown]
